FAERS Safety Report 6967631-6 (Version None)
Quarter: 2010Q3

REPORT INFORMATION
  Report Type: 
  Country: None (occurrence: None)
  Receive Date: 20100901
  Receipt Date: 20100817
  Transmission Date: 20110219
  Serious: Yes (Other)
  Sender: FDA-Public Use
  Company Number: 1000015941

PATIENT
  Age: 48 Year
  Sex: Male

DRUGS (18)
  1. ESCITALOPRAM [Suspect]
     Indication: ANXIETY
     Dosage: ORAL
     Route: 048
     Dates: start: 20060701, end: 20090701
  2. ESCITALOPRAM [Suspect]
     Indication: DEPRESSION
     Dosage: ORAL
     Route: 048
     Dates: start: 20060701, end: 20090701
  3. ESCITALOPRAM [Suspect]
     Indication: ANXIETY
     Dosage: 5 MG (5 MG,1 IN 1 D),ORAL ; 10 MG (10 MG,1 IN 1 D),ORAL
     Route: 048
     Dates: start: 20100810, end: 20100816
  4. ESCITALOPRAM [Suspect]
     Indication: DEPRESSION
     Dosage: 5 MG (5 MG,1 IN 1 D),ORAL ; 10 MG (10 MG,1 IN 1 D),ORAL
     Route: 048
     Dates: start: 20100810, end: 20100816
  5. ESCITALOPRAM [Suspect]
     Indication: ANXIETY
     Dosage: 5 MG (5 MG,1 IN 1 D),ORAL ; 10 MG (10 MG,1 IN 1 D),ORAL
     Route: 048
     Dates: start: 20100817
  6. ESCITALOPRAM [Suspect]
     Indication: DEPRESSION
     Dosage: 5 MG (5 MG,1 IN 1 D),ORAL ; 10 MG (10 MG,1 IN 1 D),ORAL
     Route: 048
     Dates: start: 20100817
  7. AMOXICILLIN [Concomitant]
  8. NEOCLARITYN [Concomitant]
  9. THIAMINE HCL [Concomitant]
  10. ACAMPROSATE [Concomitant]
  11. DISULFIRAM [Concomitant]
  12. CLONAZEPAM [Concomitant]
  13. MIRTAZAPINE [Concomitant]
  14. BUSPIRONE HCL [Concomitant]
  15. TRAZODONE HCL [Concomitant]
  16. VALIUM [Concomitant]
  17. SLEEPING TABLET (TABLETS) [Concomitant]
  18. AMITRIPTYLINE HCL [Concomitant]

REACTIONS (16)
  - AGORAPHOBIA [None]
  - ANXIETY [None]
  - DEPRESSED MOOD [None]
  - DIZZINESS [None]
  - DRY MOUTH [None]
  - EATING DISORDER [None]
  - INSOMNIA [None]
  - LOSS OF LIBIDO [None]
  - MALAISE [None]
  - MULTIPLE INJURIES [None]
  - MUSCLE SPASMS [None]
  - MUSCLE TWITCHING [None]
  - SUICIDAL IDEATION [None]
  - SUICIDE ATTEMPT [None]
  - TREMOR [None]
  - WITHDRAWAL SYNDROME [None]
